FAERS Safety Report 15231949 (Version 1)
Quarter: 2018Q3

REPORT INFORMATION
  Report Type: Spontaneous
  Country: US (occurrence: US)
  Receive Date: 20180708
  Receipt Date: 20180708
  Transmission Date: 20181010
  Serious: Yes (Hospitalization, Disabling)
  Sender: FDA-Public Use
  Company Number: None

PATIENT
  Sex: Female

DRUGS (1)
  1. THE TARGET BRAND KIDS SUNSCREEN LOTION ? SPF 50 ? 10.4.OZ ? UP+UP? (CO [Suspect]
     Active Substance: AVOBENZONE\HOMOSALATE\OCTINOXATE\OCTISALATE\OXYBENZONE
     Indication: PROPHYLAXIS AGAINST SOLAR RADIATION
     Route: 061
     Dates: start: 20180708, end: 20180708

REACTIONS (5)
  - Application site pruritus [None]
  - Discomfort [None]
  - Hypersensitivity [None]
  - Application site pain [None]
  - Pain [None]

NARRATIVE: CASE EVENT DATE: 20180708
